FAERS Safety Report 5650350-6 (Version None)
Quarter: 2008Q1

REPORT INFORMATION
  Report Type: 
  Country: None (occurrence: None)
  Receive Date: 20080305
  Receipt Date: 20080218
  Transmission Date: 20080703
  Serious: Yes (Hospitalization)
  Sender: FDA-Public Use
  Company Number: DE-BAYER-200813873GPV

PATIENT
  Age: 0 Hour
  Sex: Male
  Weight: 4.315 kg

DRUGS (1)
  1. MIRENA [Suspect]
     Route: 064
     Dates: start: 20041124

REACTIONS (3)
  - CAESAREAN SECTION [None]
  - DRUG EXPOSURE DURING PREGNANCY [None]
  - MATERNAL CONDITION AFFECTING FOETUS [None]
